FAERS Safety Report 8560251-1 (Version None)
Quarter: 2012Q3

REPORT INFORMATION
  Report Type: 
  Country: None (occurrence: None)
  Receive Date: 20120727
  Receipt Date: 20120727
  Transmission Date: 20120928
  Serious: Yes (Hospitalization)
  Sender: FDA-Public Use
  Company Number: None

PATIENT
  Age: 60 Year
  Sex: 0
  Weight: 87.4 kg

DRUGS (13)
  1. NITROGLYCERIN [Concomitant]
  2. VICTOZA [Suspect]
     Indication: DIABETES MELLITUS
     Dosage: 18MG QHS SQ RECENT
     Route: 058
  3. TRAVATAN [Concomitant]
  4. REMERON [Concomitant]
  5. NEXIUM [Concomitant]
  6. LORTAB [Concomitant]
  7. TRAMADOL HCL [Concomitant]
  8. LISINOPRIL AND HYDROCHLOROTHIAZIDE [Concomitant]
  9. ALBUTEROL [Concomitant]
  10. LIDODERM [Concomitant]
  11. WELLBUTRIN [Concomitant]
  12. LIPITOR [Concomitant]
  13. LANTUS [Concomitant]

REACTIONS (8)
  - CONSTIPATION [None]
  - VOMITING [None]
  - NAUSEA [None]
  - DYSPHAGIA [None]
  - CHEST PAIN [None]
  - HAEMORRHAGE [None]
  - GASTROOESOPHAGEAL REFLUX DISEASE [None]
  - DIVERTICULUM [None]
